FAERS Safety Report 6959473-2 (Version None)
Quarter: 2010Q3

REPORT INFORMATION
  Report Type: 
  Country: None (occurrence: None)
  Receive Date: 20100827
  Receipt Date: 20100818
  Transmission Date: 20110219
  Serious: Yes (Hospitalization, Other)
  Sender: FDA-Public Use
  Company Number: 2010SP044827

PATIENT
  Sex: Female

DRUGS (2)
  1. PEG-INTRON [Suspect]
     Indication: HEPATITIS C
     Dates: start: 20100701
  2. RIBASPHERE [Suspect]
     Indication: HEPATITIS C
     Dates: start: 20100701

REACTIONS (1)
  - AMMONIA INCREASED [None]
